FAERS Safety Report 25223731 (Version 3)
Quarter: 2025Q2

REPORT INFORMATION
  Report Type: Report from Study
  Country: CA (occurrence: CA)
  Receive Date: 20250422
  Receipt Date: 20250604
  Transmission Date: 20250716
  Serious: Yes (Hospitalization)
  Sender: SAMSUNG BIOEPIS
  Company Number: CA-SAMSUNG BIOEPIS-SB-2025-13610

PATIENT
  Age: 77 Year
  Sex: Male
  Weight: 85.9 kg

DRUGS (4)
  1. RENFLEXIS [Suspect]
     Active Substance: INFLIXIMAB-ABDA
     Indication: Colitis ulcerative
     Route: 042
     Dates: start: 20250102, end: 20250214
  2. RENFLEXIS [Suspect]
     Active Substance: INFLIXIMAB-ABDA
     Route: 042
     Dates: start: 20250311, end: 20250311
  3. RENFLEXIS [Suspect]
     Active Substance: INFLIXIMAB-ABDA
     Route: 042
     Dates: start: 20250311, end: 20250311
  4. RENFLEXIS [Suspect]
     Active Substance: INFLIXIMAB-ABDA
     Route: 042
     Dates: start: 20250311

REACTIONS (17)
  - Pneumonia [Recovered/Resolved]
  - Asthenia [Recovering/Resolving]
  - Confusional state [Recovering/Resolving]
  - Cerebral atrophy [Recovered/Resolved]
  - Cerebral small vessel ischaemic disease [Recovered/Resolved]
  - Mucosal hypertrophy [Recovered/Resolved]
  - Sinusitis [Recovered/Resolved]
  - General physical health deterioration [Recovered/Resolved]
  - Mobility decreased [Recovered/Resolved]
  - Fall [Recovered/Resolved]
  - Failure to thrive [Recovered/Resolved]
  - Bacterial infection [Recovered/Resolved]
  - Cardiac valve vegetation [Recovered/Resolved]
  - Streptococcal bacteraemia [Recovered/Resolved]
  - Endocarditis bacterial [Recovered/Resolved]
  - Off label use [Unknown]
  - Weight decreased [Unknown]

NARRATIVE: CASE EVENT DATE: 20250330
